FAERS Safety Report 9228669 (Version 1)
Quarter: 2013Q2

REPORT INFORMATION
  Report Type: Spontaneous
  Country: ES (occurrence: ES)
  Receive Date: 20130412
  Receipt Date: 20130412
  Transmission Date: 20140414
  Serious: Yes (Other)
  Sender: FDA-Public Use
  Company Number: ES-PFIZER INC-2013109481

PATIENT
  Age: 77 Year
  Sex: Female

DRUGS (3)
  1. ATORVASTATIN CALCIUM [Suspect]
     Indication: DYSLIPIDAEMIA
     Dosage: 20 MG/DAY
  2. LEVETIRACETAM [Concomitant]
     Indication: EPILEPSY
     Dosage: 2 G/DAY
  3. CARBAMAZEPINE [Concomitant]
     Indication: EPILEPSY
     Dosage: 200 MG/DAY

REACTIONS (1)
  - Interstitial granulomatous dermatitis [Unknown]
